FAERS Safety Report 8589830-2 (Version None)
Quarter: 2012Q3

REPORT INFORMATION
  Report Type: 
  Country: None (occurrence: None)
  Receive Date: 20120813
  Receipt Date: 19920701
  Transmission Date: 20120928
  Serious: Yes (Hospitalization)
  Sender: FDA-Public Use
  Company Number: US-ROCHE-1098714

PATIENT
  Age: 54 Year
  Sex: Male

DRUGS (3)
  1. ACTIVASE [Suspect]
     Indication: PRODUCT USED FOR UNKNOWN INDICATION
     Route: 032
  2. ACTIVASE [Suspect]
     Route: 041
  3. PROCARDIA [Concomitant]

REACTIONS (5)
  - NAUSEA [None]
  - CHEST PAIN [None]
  - VOMITING [None]
  - FEELING HOT [None]
  - BLOOD PRESSURE DECREASED [None]
